FAERS Safety Report 26194801 (Version 1)
Quarter: 2025Q4

REPORT INFORMATION
  Report Type: Report from Study
  Country: US (occurrence: US)
  Receive Date: 20251224
  Receipt Date: 20251224
  Transmission Date: 20260117
  Serious: Yes (Hospitalization, Other)
  Sender: ABBVIE
  Company Number: US-ABBVIE-6602064

PATIENT
  Age: 80 Year
  Sex: Female

DRUGS (2)
  1. VENCLEXTA [Suspect]
     Active Substance: VENETOCLAX
     Indication: Myelodysplastic syndrome with excess blasts
     Dosage: END DATE 2025
     Route: 048
     Dates: start: 20251012
  2. VENCLEXTA [Suspect]
     Active Substance: VENETOCLAX
     Indication: Myelodysplastic syndrome with excess blasts
     Dosage: START DATE- 2025
     Route: 048

REACTIONS (7)
  - Hospitalisation [Recovered/Resolved]
  - Blood blister [Unknown]
  - Platelet disorder [Unknown]
  - Haemorrhage [Unknown]
  - White blood cell count decreased [Unknown]
  - Central venous catheterisation [Unknown]
  - Pain in extremity [Unknown]

NARRATIVE: CASE EVENT DATE: 20250101
